FAERS Safety Report 9024929 (Version 1)
Quarter: 2012Q4

REPORT INFORMATION
  Report Type: Spontaneous
  Country: US (occurrence: None)
  Receive Date: 20121231
  Receipt Date: 20121231
  Transmission Date: 20130627
  Serious: No
  Sender: FDA-Public Use
  Company Number: SPI201200390

PATIENT
  Age: 33 Year
  Sex: Female
  Weight: 74.8 kg

DRUGS (1)
  1. AMITIZA [Suspect]
     Indication: CONSTIPATION
     Dosage: 8 mcg, prn, oral
     Route: 048
     Dates: start: 20121128, end: 20121219

REACTIONS (2)
  - Maternal exposure during pregnancy [None]
  - Pregnancy [None]
